FAERS Safety Report 8574478-6 (Version None)
Quarter: 2012Q3

REPORT INFORMATION
  Report Type: 
  Country: None (occurrence: None)
  Receive Date: 20120806
  Receipt Date: 20111130
  Transmission Date: 20120928
  Serious: No
  Sender: FDA-Public Use
  Company Number: US-ABBOTT-11P-163-0856385-00

PATIENT
  Sex: Male
  Weight: 80.358 kg

DRUGS (2)
  1. DEPAKOTE ER [Suspect]
     Indication: DEPRESSION
  2. DEPAKOTE ER [Suspect]
     Indication: BIPOLAR DISORDER
     Route: 048
     Dates: start: 20100101, end: 20110901

REACTIONS (8)
  - JOINT SWELLING [None]
  - RASH MACULAR [None]
  - RASH PRURITIC [None]
  - OEDEMA PERIPHERAL [None]
  - EAR DISCOMFORT [None]
  - HEADACHE [None]
  - DIZZINESS [None]
  - TINNITUS [None]
